FAERS Safety Report 5376026-0 (Version None)
Quarter: 2007Q2

REPORT INFORMATION
  Report Type: 
  Country: None (occurrence: None)
  Receive Date: 20070628
  Receipt Date: 20070619
  Transmission Date: 20071010
  Serious: Yes (Other)
  Sender: FDA-Public Use
  Company Number: B0476358A

PATIENT
  Sex: 0

DRUGS (2)
  1. COMBIVIR [Suspect]
     Indication: HIV INFECTION
     Dosage: 450 MG / TWICE PER DAY
  2. LOPINAVIR + RITONAVIR (FORMULATION UNKNOWN) (LOPINAVIR + RITONAVIR) [Suspect]
     Indication: HIV INFECTION
     Dosage: 500 MG / TWICE PER DAY
     Route: 065

REACTIONS (2)
  - ALANINE AMINOTRANSFERASE INCREASED [None]
  - ASPARTATE AMINOTRANSFERASE INCREASED [None]
